FAERS Safety Report 18302302 (Version 1)
Quarter: 2020Q3

REPORT INFORMATION
  Report Type: Report from Study
  Country: CA (occurrence: CA)
  Receive Date: 20200923
  Receipt Date: 20200923
  Transmission Date: 20201103
  Serious: Yes (Other)
  Sender: FDA-Public Use
  Company Number: CA-JNJFOC-20200927409

PATIENT
  Age: 9 Year
  Sex: Female
  Weight: 34.8 kg

DRUGS (1)
  1. REMICADE [Suspect]
     Active Substance: INFLIXIMAB
     Indication: COLITIS ULCERATIVE
     Dosage: ON 14?SEP?2020, THE PATIENT RECEIVED 71ST 350 MG OF INFLIXIMAB RECOMBINANT
     Route: 042
     Dates: start: 20150312

REACTIONS (2)
  - Haematochezia [Unknown]
  - General physical health deterioration [Unknown]

NARRATIVE: CASE EVENT DATE: 20200913
